FAERS Safety Report 19673406 (Version 1)
Quarter: 2021Q3

REPORT INFORMATION
  Report Type: Spontaneous
  Country: US (occurrence: US)
  Receive Date: 20210809
  Receipt Date: 20210809
  Transmission Date: 20211014
  Serious: Yes (Other)
  Sender: FDA-Public Use
  Company Number: US-AUROBINDO-AUR-APL-2021-033317

PATIENT
  Age: 58 Year
  Sex: Male

DRUGS (6)
  1. TACROLIMUS. [Concomitant]
     Active Substance: TACROLIMUS
     Dosage: 0.5 MILLIGRAM, ONCE A DAY
     Route: 065
  2. PREDNISONE. [Concomitant]
     Active Substance: PREDNISONE
     Indication: IMMUNOSUPPRESSANT DRUG THERAPY
     Dosage: 10 MILLIGRAM, ONCE A DAY
     Route: 065
     Dates: start: 2018
  3. VEDOLIZUMAB [Concomitant]
     Active Substance: VEDOLIZUMAB
     Indication: COLITIS ULCERATIVE
     Dosage: UNK
     Route: 065
     Dates: start: 2018
  4. CARBOPLATIN. [Suspect]
     Active Substance: CARBOPLATIN
     Indication: SKIN SQUAMOUS CELL CARCINOMA METASTATIC
     Dosage: UNK (4CYCLE)
     Route: 065
     Dates: start: 2018, end: 2018
  5. TACROLIMUS. [Concomitant]
     Active Substance: TACROLIMUS
     Indication: IMMUNOSUPPRESSANT DRUG THERAPY
     Dosage: 1 MILLIGRAM, ONCE A DAY
     Route: 065
  6. PACLITAXEL. [Suspect]
     Active Substance: PACLITAXEL
     Indication: SKIN SQUAMOUS CELL CARCINOMA METASTATIC
     Dosage: UNK (4 CYCLE)
     Route: 065
     Dates: start: 2018, end: 2018

REACTIONS (1)
  - Colitis ulcerative [Recovering/Resolving]

NARRATIVE: CASE EVENT DATE: 2018
